FAERS Safety Report 11782214 (Version 1)
Quarter: 2015Q4

REPORT INFORMATION
  Report Type: Spontaneous
  Country: US (occurrence: US)
  Receive Date: 20151127
  Receipt Date: 20151127
  Transmission Date: 20160305
  Serious: No
  Sender: FDA-Public Use
  Company Number: US-ELI_LILLY_AND_COMPANY-US201511003899

PATIENT
  Sex: Male

DRUGS (5)
  1. INSULIN HUMAN [Suspect]
     Active Substance: INSULIN HUMAN
     Indication: TYPE 2 DIABETES MELLITUS
     Dosage: UNK UNK, UNKNOWN
     Route: 058
     Dates: start: 1995
  2. INSULIN HUMAN [Suspect]
     Active Substance: INSULIN HUMAN
     Indication: TYPE 2 DIABETES MELLITUS
     Dosage: UNK, UNKNOWN
     Route: 058
  3. LISINOPRIL. [Concomitant]
     Active Substance: LISINOPRIL
     Indication: HYPERTENSION
     Dosage: 100 MG, UNK
  4. AMLOPINE [Concomitant]
     Dosage: 5 MG, UNK
  5. FUROSEMIDE. [Concomitant]
     Active Substance: FUROSEMIDE
     Dosage: UNK

REACTIONS (9)
  - Drug ineffective [Unknown]
  - Blood glucose increased [Unknown]
  - Wrong technique in product usage process [Unknown]
  - Amnesia [Unknown]
  - Blood glucose decreased [Not Recovered/Not Resolved]
  - Pain in extremity [Unknown]
  - Skin ulcer [Not Recovered/Not Resolved]
  - Hyperhidrosis [Unknown]
  - Peripheral swelling [Unknown]

NARRATIVE: CASE EVENT DATE: 1995
